FAERS Safety Report 5809894-6 (Version None)
Quarter: 2008Q3

REPORT INFORMATION
  Report Type: 
  Country: None (occurrence: None)
  Receive Date: 20080709
  Receipt Date: 20080701
  Transmission Date: 20090109
  Serious: Yes (Other)
  Sender: FDA-Public Use
  Company Number: 056-C5013-07110778

PATIENT
  Age: 70 Year
  Sex: Male
  Weight: 52 kg

DRUGS (2)
  1. CC-5013 (LENALIDOMIDE) (CAPSULES) [Suspect]
     Indication: NON-HODGKIN'S LYMPHOMA
     Dosage: 25 MG, DAILY X21 DAYS, ORAL
     Route: 048
     Dates: start: 20071002
  2. ALLOPURINOL [Concomitant]

REACTIONS (7)
  - ANXIETY [None]
  - CONDITION AGGRAVATED [None]
  - DISTURBANCE IN ATTENTION [None]
  - DIZZINESS [None]
  - DRUG TOLERANCE DECREASED [None]
  - MUSCLE SPASMS [None]
  - PSORIASIS [None]
